FAERS Safety Report 5202809-3 (Version None)
Quarter: 2006Q4

REPORT INFORMATION
  Report Type: 
  Country: None (occurrence: None)
  Receive Date: 20061018
  Receipt Date: 20060418
  Transmission Date: 20070319
  Serious: No
  Sender: FDA-Public Use
  Company Number: 06P-167-0331360-00

PATIENT
  Age: 44 Year
  Sex: Male
  Weight: 68.4932 kg

DRUGS (4)
  1. KALETRA [Suspect]
     Indication: HIV INFECTION
     Dosage: 3 CAPSULE, 2 IN 1 D, ORAL
     Route: 048
     Dates: start: 20051101
  2. EMTRICITABINE [Concomitant]
  3. DIDANOSINE [Concomitant]
  4. VITAMIN CAP [Concomitant]

REACTIONS (2)
  - BLOOD URIC ACID ABNORMAL [None]
  - HYPERTRIGLYCERIDAEMIA [None]
